FAERS Safety Report 5848421-4 (Version None)
Quarter: 2008Q3

REPORT INFORMATION
  Report Type: 
  Country: None (occurrence: None)
  Receive Date: 20080818
  Receipt Date: 20080806
  Transmission Date: 20090109
  Serious: Yes (Hospitalization)
  Sender: FDA-Public Use
  Company Number: JP-ROCHE-547593

PATIENT
  Age: 65 Year
  Sex: Female

DRUGS (4)
  1. PEG-INTERFERON A-2A (RO 25-8310) [Suspect]
     Route: 058
     Dates: start: 20071002, end: 20080205
  2. RIBAVIRIN [Suspect]
     Route: 048
     Dates: start: 20071002, end: 20080205
  3. RIBAVIRIN [Suspect]
     Route: 048
     Dates: start: 20060101, end: 20061201
  4. RIBAVIRIN [Suspect]
     Route: 048
     Dates: start: 20030101, end: 20040101

REACTIONS (5)
  - ANAEMIA [None]
  - BONE MARROW FAILURE [None]
  - HAEMATURIA [None]
  - HAEMOLYSIS [None]
  - PYREXIA [None]
